FAERS Safety Report 5474507-2 (Version None)
Quarter: 2007Q4

REPORT INFORMATION
  Report Type: 
  Country: None (occurrence: None)
  Receive Date: 20071002
  Receipt Date: 20070921
  Transmission Date: 20080405
  Serious: Yes (Death)
  Sender: FDA-Public Use
  Company Number: MW-BOEHRINGER INGELHEIM PHARMACEUTICALS, INC.-2007-DE-05685GD

PATIENT

DRUGS (3)
  1. TRIOMUNE [Suspect]
     Indication: HIV INFECTION
     Dosage: STAVUDINE 60 MG OR 80 MG/LAMIVUDINE 300 MG/NEVIRAPINE 200 MG
     Route: 048
  2. TRIOMUNE [Suspect]
     Dosage: STAVUDINE 60 MG OR 80 MG/LAMIVUDINE 300 MG/NEVIRAPINE 400 MG
     Route: 048
  3. COTRIMOXAZOLE [Concomitant]
     Indication: PROPHYLAXIS

REACTIONS (1)
  - DEATH [None]
